FAERS Safety Report 8048681-8 (Version None)
Quarter: 2012Q1

REPORT INFORMATION
  Report Type: 
  Country: None (occurrence: None)
  Receive Date: 20120110
  Receipt Date: 20111229
  Transmission Date: 20120608
  Serious: Yes (Hospitalization, Other)
  Sender: FDA-Public Use
  Company Number: 07-AUR-00165

PATIENT
  Age: 54 Year
  Sex: Female

DRUGS (2)
  1. METFORMIN HCL [Suspect]
     Indication: TYPE 2 DIABETES MELLITUS
     Dosage: 2550 MG (850 MG, 3 IN 1 D), ORAL
     Route: 048
  2. FLOXACILLIN SODIUM [Concomitant]

REACTIONS (13)
  - DIARRHOEA [None]
  - AGITATION [None]
  - BLOOD GLUCOSE DECREASED [None]
  - ABDOMINAL PAIN [None]
  - PERIPHERAL VASCULAR DISORDER [None]
  - LACTIC ACIDOSIS [None]
  - CELLULITIS [None]
  - HYPOTENSION [None]
  - HAEMODIALYSIS [None]
  - DEPRESSED LEVEL OF CONSCIOUSNESS [None]
  - TACHYCARDIA [None]
  - RENAL FAILURE ACUTE [None]
  - HYPOVOLAEMIA [None]
